FAERS Safety Report 9292360 (Version 2)
Quarter: 2014Q1

REPORT INFORMATION
  Report Type: Spontaneous
  Country: US (occurrence: US)
  Receive Date: 20130516
  Receipt Date: 20140129
  Transmission Date: 20141002
  Serious: Yes (Hospitalization)
  Sender: FDA-Public Use
  Company Number: US-BAYER-2013-060520

PATIENT
  Age: 32 Year
  Sex: Female
  Weight: 106.58 kg

DRUGS (3)
  1. OCELLA [Suspect]
     Indication: ACNE
     Dosage: UNK
     Dates: start: 2006, end: 2008
  2. OCELLA [Suspect]
     Indication: PREMENSTRUAL SYNDROME
  3. ALEVE [Concomitant]

REACTIONS (3)
  - Thrombosis [None]
  - Pain [None]
  - Pain [None]
